FAERS Safety Report 9903688 (Version 2)
Quarter: 2014Q1

REPORT INFORMATION
  Report Type: Spontaneous
  Country: US (occurrence: US)
  Receive Date: 20140217
  Receipt Date: 20140217
  Transmission Date: 20141002
  Serious: Yes (Other)
  Sender: FDA-Public Use
  Company Number: US-GE HEALTHCARE MEDICAL DIAGNOSTICS-OSCN-PR-0907S-0363

PATIENT
  Age: 63 Year
  Sex: Male

DRUGS (5)
  1. OMNISCAN [Suspect]
     Indication: PRODUCT USED FOR UNKNOWN INDICATION
     Route: 042
  2. GADOLINIUM (UNSPECIFIED) [Suspect]
     Indication: PRODUCT USED FOR UNKNOWN INDICATION
     Route: 042
     Dates: start: 20030609, end: 20030609
  3. GADOLINIUM (UNSPECIFIED) [Suspect]
     Dates: start: 20050112, end: 20050112
  4. GADOLINIUM (UNSPECIFIED) [Suspect]
     Dates: start: 20050308, end: 20050308
  5. OPTIMARK [Suspect]
     Indication: RENAL ARTERY STENOSIS
     Route: 042
     Dates: start: 20031202, end: 20031202

REACTIONS (1)
  - Nephrogenic systemic fibrosis [Not Recovered/Not Resolved]
